FAERS Safety Report 7025431-5 (Version None)
Quarter: 2010Q4

REPORT INFORMATION
  Report Type: 
  Country: None (occurrence: None)
  Receive Date: 20101001
  Receipt Date: 20100927
  Transmission Date: 20110411
  Serious: Yes (Death, Other)
  Sender: FDA-Public Use
  Company Number: PHHY2010NZ53925

PATIENT
  Sex: Female

DRUGS (5)
  1. CLOZARIL [Suspect]
     Dosage: 125 MG NOCTE
     Dates: start: 19950918
  2. ZOPICLONE [Concomitant]
  3. CLONAZEPAM [Concomitant]
  4. VALPROATE SODIUM [Concomitant]
  5. BENZTROPINE MESYLATE [Concomitant]

REACTIONS (3)
  - DEEP VEIN THROMBOSIS [None]
  - KNEE OPERATION [None]
  - PULMONARY EMBOLISM [None]
